FAERS Safety Report 6391407-4 (Version None)
Quarter: 2009Q4

REPORT INFORMATION
  Report Type: 
  Country: None (occurrence: None)
  Receive Date: 20091006
  Receipt Date: 20091006
  Transmission Date: 20100525
  Serious: Yes (Other)
  Sender: FDA-Public Use
  Company Number: None

PATIENT
  Age: 56 Year
  Sex: Female
  Weight: 58.0604 kg

DRUGS (1)
  1. ARIMIDEX [Suspect]
     Indication: BREAST CANCER
     Dosage: 1MG 1X A DAY PO
     Route: 048
     Dates: start: 20080714, end: 20091005

REACTIONS (4)
  - ALOPECIA [None]
  - ANDROGENETIC ALOPECIA [None]
  - BONE PAIN [None]
  - DISCOMFORT [None]
